FAERS Safety Report 9031075 (Version 1)
Quarter: 2013Q1

REPORT INFORMATION
  Report Type: Report from Study
  Country: GB (occurrence: GB)
  Receive Date: 20130123
  Receipt Date: 20130123
  Transmission Date: 20140127
  Serious: Yes (Other)
  Sender: FDA-Public Use
  Company Number: GB-PFIZER INC-2013011043

PATIENT
  Sex: Male

DRUGS (10)
  1. IRINOTECAN HCL [Suspect]
     Indication: CHEMOTHERAPY
     Route: 065
  2. OXALIPLATIN [Suspect]
     Indication: CHEMOTHERAPY
     Dosage: UNK
     Route: 042
     Dates: start: 20070906, end: 20071129
  3. FLUOROURACIL [Suspect]
     Indication: CHEMOTHERAPY
     Route: 065
  4. FOLINIC ACID [Suspect]
     Indication: CHEMOTHERAPY
     Route: 065
  5. DEXAMETHASONE [Concomitant]
     Indication: ANTIEMETIC SUPPORTIVE CARE
     Dosage: 4 MG, 2X/DAY, BOLUS
     Dates: start: 20070906
  6. METOCLOPRAMIDE [Concomitant]
     Dosage: 10 MG, AS NEEDED
     Route: 048
  7. OMEPRAZOLE [Concomitant]
     Dosage: 20 MG, 1X/DAY
     Dates: start: 20071101
  8. ZOFRAN [Concomitant]
     Dosage: 8 MG, 2X/DAY
  9. DIGOXIN [Concomitant]
     Indication: PREMEDICATION
     Dosage: 125 MG, 1X/DAY
  10. ONDANSETRON [Concomitant]
     Dosage: 8 MG, (BOLUS)
     Dates: start: 20070916

REACTIONS (10)
  - Device related infection [Not Recovered/Not Resolved]
  - Candida infection [Unknown]
  - Dyspepsia [Not Recovered/Not Resolved]
  - Dry mouth [Not Recovered/Not Resolved]
  - Genital disorder male [Unknown]
  - Hyperglycaemia [Unknown]
  - Lethargy [Not Recovered/Not Resolved]
  - Neuropathy peripheral [Not Recovered/Not Resolved]
  - Campylobacter infection [Unknown]
  - Diarrhoea [Unknown]
